FAERS Safety Report 7911663-8 (Version None)
Quarter: 2011Q4

REPORT INFORMATION
  Report Type: 
  Country: None (occurrence: None)
  Receive Date: 20111114
  Receipt Date: 20111108
  Transmission Date: 20120403
  Serious: Yes (Death)
  Sender: FDA-Public Use
  Company Number: US-JNJFOC-20111104855

PATIENT
  Sex: Female

DRUGS (12)
  1. BEVACIZUMAB [Suspect]
     Route: 042
  2. BEVACIZUMAB [Suspect]
     Route: 042
  3. DOXORUBICIN HCL [Suspect]
     Indication: ENDOMETRIAL CANCER
     Route: 042
  4. DOXORUBICIN HCL [Suspect]
     Route: 042
  5. DOXORUBICIN HCL [Suspect]
     Route: 042
  6. BEVACIZUMAB [Suspect]
     Route: 042
  7. TEMSIROLIMUS [Suspect]
     Indication: ENDOMETRIAL CANCER
     Route: 042
  8. DOXORUBICIN HCL [Suspect]
     Route: 042
  9. BEVACIZUMAB [Suspect]
     Indication: ENDOMETRIAL CANCER
     Route: 042
  10. TEMSIROLIMUS [Suspect]
     Route: 042
  11. TEMSIROLIMUS [Suspect]
     Route: 042
  12. TEMSIROLIMUS [Suspect]
     Route: 042

REACTIONS (2)
  - LARGE INTESTINE PERFORATION [None]
  - OFF LABEL USE [None]
